FAERS Safety Report 7359641-4 (Version None)
Quarter: 2011Q1

REPORT INFORMATION
  Report Type: 
  Country: None (occurrence: None)
  Receive Date: 20110317
  Receipt Date: 20100723
  Transmission Date: 20110831
  Serious: No
  Sender: FDA-Public Use
  Company Number: US-PFIZER INC-2009289226

PATIENT
  Sex: Male
  Weight: 99.773 kg

DRUGS (1)
  1. AMLODIPINE BESYLATE [Suspect]
     Indication: HYPERTENSION
     Dosage: 5 MG, 1X/DAY
     Route: 048
     Dates: start: 20090116, end: 20091001

REACTIONS (2)
  - GINGIVAL HYPERPLASIA [None]
  - PERIODONTAL DISEASE [None]
